FAERS Safety Report 12009182 (Version 1)
Quarter: 2016Q1

REPORT INFORMATION
  Report Type: Spontaneous
  Country: US (occurrence: None)
  Receive Date: 20160204
  Receipt Date: 20160204
  Transmission Date: 20160526
  Serious: Yes (Death, Other)
  Sender: FDA-Public Use
  Company Number: None

PATIENT
  Age: 33 Year
  Sex: Male
  Weight: 97.52 kg

DRUGS (3)
  1. WELLBUTRIN XL [Suspect]
     Active Substance: BUPROPION HYDROCHLORIDE
     Indication: MAJOR DEPRESSION
     Dosage: 1 PILL, 1 PER DAY, BY MOUTH
  2. ST JOHN^S WART [Concomitant]
  3. IBUPROFEN. [Concomitant]
     Active Substance: IBUPROFEN

REACTIONS (10)
  - Suicide attempt [None]
  - Drug interaction [None]
  - Psychopathic personality [None]
  - Homicide [None]
  - Imprisonment [None]
  - Anger [None]
  - Serotonin syndrome [None]
  - Psychotic disorder [None]
  - Aggression [None]
  - Homicidal ideation [None]

NARRATIVE: CASE EVENT DATE: 20060516
